FAERS Safety Report 4630603-0 (Version None)
Quarter: 2005Q2

REPORT INFORMATION
  Report Type: 
  Country: None (occurrence: None)
  Receive Date: 20050405
  Receipt Date: 20050405
  Transmission Date: 20051028
  Serious: Yes (Other)
  Sender: FDA-Public Use
  Company Number: None

PATIENT
  Age: 46 Year
  Sex: Female
  Weight: 58.0604 kg

DRUGS (6)
  1. FENTANYL [Suspect]
     Indication: NEUROPATHY
     Dosage: 100 MCG 1 HR
     Dates: start: 20050302
  2. FENTANYL [Suspect]
     Indication: PAIN
     Dosage: 100 MCG 1 HR
     Dates: start: 20050302
  3. FENTANYL [Suspect]
     Indication: SYSTEMIC LUPUS ERYTHEMATOSUS
     Dosage: 100 MCG 1 HR
     Dates: start: 20050302
  4. FENTANYL [Suspect]
     Indication: NEUROPATHY
     Dosage: 100 MCG 1 HR
     Dates: start: 20050330
  5. FENTANYL [Suspect]
     Indication: PAIN
     Dosage: 100 MCG 1 HR
     Dates: start: 20050330
  6. FENTANYL [Suspect]
     Indication: SYSTEMIC LUPUS ERYTHEMATOSUS
     Dosage: 100 MCG 1 HR
     Dates: start: 20050330

REACTIONS (4)
  - APPLICATION SITE DERMATITIS [None]
  - DRUG EFFECT DECREASED [None]
  - NERVOUS SYSTEM DISORDER [None]
  - PHARMACEUTICAL PRODUCT COMPLAINT [None]
